FAERS Safety Report 7823752-7 (Version None)
Quarter: 2011Q4

REPORT INFORMATION
  Report Type: 
  Country: None (occurrence: None)
  Receive Date: 20111019
  Receipt Date: 20111014
  Transmission Date: 20120403
  Serious: No
  Sender: FDA-Public Use
  Company Number: US-PFIZER INC-2011246972

PATIENT
  Sex: Female
  Weight: 83.9 kg

DRUGS (9)
  1. LYRICA [Suspect]
     Indication: NEUROPATHY PERIPHERAL
  2. VERAPAMIL [Concomitant]
     Indication: HYPERTENSION
     Dosage: UNK
  3. MAXZIDE [Concomitant]
     Indication: DIURETIC THERAPY
     Dosage: UNK
  4. LORTAB [Concomitant]
     Dosage: UNK
  5. LOTREL [Concomitant]
     Dosage: UNK
  6. LYRICA [Suspect]
     Indication: FIBROMYALGIA
     Dosage: UNK
     Route: 048
     Dates: start: 20061101, end: 20061201
  7. LEVOTHYROXINE [Concomitant]
     Dosage: UNK
  8. IBUPROFEN [Concomitant]
     Dosage: UNK
  9. FOLIC ACID [Concomitant]
     Dosage: UNK

REACTIONS (5)
  - DISCOMFORT [None]
  - PAIN IN EXTREMITY [None]
  - MUSCLE SPASMS [None]
  - DRUG INTOLERANCE [None]
  - PAIN [None]
